FAERS Safety Report 5918946-1 (Version None)
Quarter: 2008Q4

REPORT INFORMATION
  Report Type: 
  Country: None (occurrence: None)
  Receive Date: 20081010
  Receipt Date: 20080925
  Transmission Date: 20090506
  Serious: Yes (Life-Threatening, Hospitalization)
  Sender: FDA-Public Use
  Company Number: DSA_32336_2008

PATIENT
  Age: 77 Year
  Sex: Female

DRUGS (10)
  1. ENALAPRIL MALEATE [Suspect]
     Indication: DRUG USE FOR UNKNOWN INDICATION
     Dosage: (5 MG QD)
  2. FLUOXETINE [Suspect]
     Indication: DRUG USE FOR UNKNOWN INDICATION
     Dosage: (40 MG QD)
  3. OMEPRAZOLE [Suspect]
     Indication: DRUG USE FOR UNKNOWN INDICATION
     Dosage: (20 MG,)
  4. ASPIRIN [Concomitant]
  5. ATENOLOL [Concomitant]
  6. BROMAZEPAM [Concomitant]
  7. PROPOXYPHENE [Concomitant]
  8. GLUCOSAN [Concomitant]
  9. MELOXICAM [Concomitant]
  10. BETAMETHASONE [Concomitant]

REACTIONS (3)
  - METABOLIC ENCEPHALOPATHY [None]
  - MYDRIASIS [None]
  - SEROTONIN SYNDROME [None]
